FAERS Safety Report 8522477-2 (Version None)
Quarter: 2012Q3

REPORT INFORMATION
  Report Type: 
  Country: None (occurrence: None)
  Receive Date: 20120719
  Receipt Date: 20120709
  Transmission Date: 20120928
  Serious: Yes (Other)
  Sender: FDA-Public Use
  Company Number: CO-ELI_LILLY_AND_COMPANY-CO201207003151

PATIENT
  Age: 48 Year
  Sex: Male

DRUGS (2)
  1. CISPLATIN [Concomitant]
     Dosage: 163 MG, UNKNOWN
  2. ALIMTA [Suspect]
     Indication: PLEURAL MESOTHELIOMA MALIGNANT
     Dosage: 1 G, UNKNOWN

REACTIONS (4)
  - EYELID OEDEMA [None]
  - PRURITUS GENERALISED [None]
  - DYSPNOEA [None]
  - OCULAR HYPERAEMIA [None]
